FAERS Safety Report 4532110-2 (Version None)
Quarter: 2004Q4

REPORT INFORMATION
  Report Type: 
  Country: None (occurrence: None)
  Receive Date: 20041217
  Receipt Date: 20041206
  Transmission Date: 20050328
  Serious: Yes (Hospitalization)
  Sender: FDA-Public Use
  Company Number: 2004SE04671

PATIENT
  Age: 61 Year
  Sex: Female
  Weight: 75 kg

DRUGS (8)
  1. BLOPRESS [Suspect]
     Indication: HYPERTENSION
     Dosage: 8 MG QD PO
     Route: 048
     Dates: start: 20040727, end: 20040809
  2. IMIDAPRIL HYDROCHLORIDE [Concomitant]
  3. NORVASC [Concomitant]
  4. VALPROATE SODIUM [Concomitant]
  5. ACETYLSALICYLIC ACID [Concomitant]
  6. EDARAVONE [Concomitant]
  7. ARGATROBAN [Concomitant]
  8. NICARDIPINE HYDROCHLORIDE [Concomitant]

REACTIONS (5)
  - ALANINE AMINOTRANSFERASE INCREASED [None]
  - ASPARTATE AMINOTRANSFERASE INCREASED [None]
  - BLOOD LACTATE DEHYDROGENASE INCREASED [None]
  - LYMPHOCYTE STIMULATION TEST NEGATIVE [None]
  - STEVENS-JOHNSON SYNDROME [None]
